FAERS Safety Report 4860008-9 (Version None)
Quarter: 2005Q4

REPORT INFORMATION
  Report Type: 
  Country: None (occurrence: None)
  Receive Date: 20051219
  Receipt Date: 20051206
  Transmission Date: 20060501
  Serious: Yes (Hospitalization, Other)
  Sender: FDA-Public Use
  Company Number: US-ABBOTT-05P-163-0318736-00

PATIENT
  Sex: Male
  Weight: 109 kg

DRUGS (3)
  1. HUMIRA [Suspect]
     Indication: RHEUMATOID ARTHRITIS
     Route: 058
     Dates: start: 20040224, end: 20050401
  2. OXYCODONE [Concomitant]
     Indication: ARTHRALGIA
     Route: 048
     Dates: start: 20030101
  3. PREDNISONE TAB [Concomitant]
     Indication: RHEUMATOID ARTHRITIS
     Route: 048

REACTIONS (7)
  - CELLULITIS [None]
  - ERYTHEMA [None]
  - FOLLICULITIS [None]
  - RASH [None]
  - STAPHYLOCOCCAL INFECTION [None]
  - SYNOVIAL CYST [None]
  - WHITE BLOOD CELL COUNT INCREASED [None]
